FAERS Safety Report 6341597-4 (Version None)
Quarter: 2009Q3

REPORT INFORMATION
  Report Type: 
  Country: None (occurrence: None)
  Receive Date: 20090902
  Receipt Date: 20090902
  Transmission Date: 20100115
  Serious: Yes (Other)
  Sender: FDA-Public Use
  Company Number: None

PATIENT
  Age: 24 Year
  Sex: Female

DRUGS (2)
  1. CIPROFLAXACIN [Suspect]
     Indication: SINUSITIS
  2. CIPROFLAXACIN [Suspect]
     Indication: URINARY TRACT INFECTION

REACTIONS (3)
  - CONVULSION [None]
  - MYOPATHY [None]
  - RENAL FAILURE ACUTE [None]
